FAERS Safety Report 7903104-1 (Version None)
Quarter: 2011Q4

REPORT INFORMATION
  Report Type: 
  Country: None (occurrence: None)
  Receive Date: 20111107
  Receipt Date: 20111031
  Transmission Date: 20120403
  Serious: Yes (Hospitalization)
  Sender: FDA-Public Use
  Company Number: A0846984A

PATIENT
  Age: 40 Year
  Sex: Female

DRUGS (1)
  1. ORLISTAT [Suspect]
     Indication: PRODUCT USED FOR UNKNOWN INDICATION
     Dosage: ORAL
     Route: 048
     Dates: start: 20091101, end: 20091201

REACTIONS (29)
  - LIVER TRANSPLANT [None]
  - HEPATIC HAEMATOMA [None]
  - HEPATITIS B CORE ANTIBODY POSITIVE [None]
  - GLAUCOMA [None]
  - TACHYCARDIA [None]
  - COAGULOPATHY [None]
  - PORTAL VEIN FLOW DECREASED [None]
  - DIABETES MELLITUS [None]
  - LEUKOCYTOSIS [None]
  - INFLUENZA LIKE ILLNESS [None]
  - CHOLESTASIS [None]
  - HAEMODYNAMIC INSTABILITY [None]
  - POST PROCEDURAL HAEMORRHAGE [None]
  - HEADACHE [None]
  - ANTINUCLEAR ANTIBODY POSITIVE [None]
  - LIVER INJURY [None]
  - HEPATIC FIBROSIS [None]
  - HEPATIC NECROSIS [None]
  - HEPATO-LENTICULAR DEGENERATION [None]
  - ENCEPHALOPATHY [None]
  - HEPATIC CIRRHOSIS [None]
  - OPTIC NERVE CUP/DISC RATIO INCREASED [None]
  - ACUTE HEPATIC FAILURE [None]
  - GALLBLADDER DISORDER [None]
  - ANAEMIA [None]
  - INTESTINAL DILATATION [None]
  - NO THERAPEUTIC RESPONSE [None]
  - ASCITES [None]
  - BILIARY TRACT DISORDER [None]
